FAERS Safety Report 18553688 (Version 1)
Quarter: 2020Q4

REPORT INFORMATION
  Report Type: Spontaneous
  Country: TR (occurrence: TR)
  Receive Date: 20201127
  Receipt Date: 20201127
  Transmission Date: 20210114
  Serious: Yes (Other)
  Sender: FDA-Public Use
  Company Number: TR-SUN PHARMACEUTICAL INDUSTRIES LTD-2020RR-269221

PATIENT
  Age: 19 Year
  Sex: Male

DRUGS (5)
  1. HALOPERIDOL. [Suspect]
     Active Substance: HALOPERIDOL
     Dosage: 20 MILLIGRAM, DAILY
     Route: 065
  2. CLOZAPINE. [Suspect]
     Active Substance: CLOZAPINE
     Dosage: 150 MILLIGRAM, DAILY
     Route: 065
  3. RISPERIDONE. [Suspect]
     Active Substance: RISPERIDONE
     Indication: TOURETTE^S DISORDER
     Dosage: 8 MILLIGRAM, DAILY
     Route: 065
  4. CLOZAPINE. [Suspect]
     Active Substance: CLOZAPINE
     Indication: TOURETTE^S DISORDER
     Dosage: 12.5 MILLIGRAM, DAILY
     Route: 065
  5. HALOPERIDOL. [Suspect]
     Active Substance: HALOPERIDOL
     Indication: TOURETTE^S DISORDER
     Dosage: 2.5 MILLIGRAM, DAILY
     Route: 065

REACTIONS (9)
  - Sedation [Unknown]
  - Drug ineffective [Unknown]
  - Sleep disorder [Unknown]
  - Restlessness [Unknown]
  - Polyuria [Unknown]
  - Fatigue [Unknown]
  - Abnormal weight gain [Unknown]
  - Disturbance in attention [Unknown]
  - Polydipsia [Unknown]
